FAERS Safety Report 19456518 (Version 2)
Quarter: 2021Q3

REPORT INFORMATION
  Report Type: Spontaneous
  Country: PL (occurrence: PL)
  Receive Date: 20210624
  Receipt Date: 20210730
  Transmission Date: 20211014
  Serious: Yes (Death, Hospitalization, Other)
  Sender: FDA-Public Use
  Company Number: PL-SUN PHARMACEUTICAL INDUSTRIES LTD-2021RR-301634

PATIENT
  Age: 75 Year
  Sex: Male

DRUGS (20)
  1. ACETYLSALICYLIC ACID [Suspect]
     Active Substance: ASPIRIN
     Indication: PRODUCT USED FOR UNKNOWN INDICATION
     Dosage: 75 MILLIGRAM, UNK
     Route: 065
  2. BISOPROLOL [Suspect]
     Active Substance: BISOPROLOL
     Dosage: 1.875 MG, QD (1X1.5 TABLET IN THE MORNING)
     Route: 065
  3. TORSEMED [Suspect]
     Active Substance: TORSEMIDE
     Indication: PRODUCT USED FOR UNKNOWN INDICATION
     Dosage: 10 MG, QD IN THE MORNING
     Route: 065
  4. IPP (PANTOPRAZOLE SODIUM) [Suspect]
     Active Substance: PANTOPRAZOLE SODIUM
     Dosage: 20 MG, QD IN THE MORNING
     Route: 065
  5. RAMIPRIL. [Suspect]
     Active Substance: RAMIPRIL
     Dosage: 2.5 MG, BID (1 TABLET (2.5MG) IN THE MORNING AND 1 TABLET IN THE EVENING)
     Route: 065
  6. IPP (PANTOPRAZOLE SODIUM) [Suspect]
     Active Substance: PANTOPRAZOLE SODIUM
     Route: 065
  7. OMEPRAZOLE. [Suspect]
     Active Substance: OMEPRAZOLE
     Indication: PRODUCT USED FOR UNKNOWN INDICATION
     Dosage: 20 MG, QD (TABLET ON EMPTY STOMACH)
     Route: 065
  8. ESOMEPRAZOLE. [Suspect]
     Active Substance: ESOMEPRAZOLE MAGNESIUM
     Indication: PRODUCT USED FOR UNKNOWN INDICATION
     Dosage: 40 MG, BID (TABLET)
     Route: 065
  9. ATORVASTATIN [Suspect]
     Active Substance: ATORVASTATIN
     Indication: PRODUCT USED FOR UNKNOWN INDICATION
     Dosage: 10 MG, QD IN THE EVENING
     Route: 065
  10. ENTRESTO [Suspect]
     Active Substance: SACUBITRIL\VALSARTAN
     Indication: PRODUCT USED FOR UNKNOWN INDICATION
     Dosage: 24/26 MG, BID ()
     Route: 065
  11. ESOMEPRAZOLE. [Suspect]
     Active Substance: ESOMEPRAZOLE MAGNESIUM
     Dosage: 40 MG, QD (1X1 TABLET IN THE MORNING ON THE EMPTY STOMACH)
     Route: 065
  12. RAMIPRIL. [Suspect]
     Active Substance: RAMIPRIL
     Indication: PRODUCT USED FOR UNKNOWN INDICATION
     Dosage: 1 TABLET (2.5MG) IN THE MORNING AND 1/2 TABLET IN THE EVENING ()
     Route: 065
  13. LEVOFLOXACIN. [Suspect]
     Active Substance: LEVOFLOXACIN
     Indication: INFECTIVE EXACERBATION OF CHRONIC OBSTRUCTIVE AIRWAYS DISEASE
     Dosage: UNK
     Route: 042
  14. TORSEMED [Suspect]
     Active Substance: TORSEMIDE
     Dosage: 10 MILLIGRAM
     Route: 065
  15. IPP (PANTOPRAZOLE SODIUM) [Suspect]
     Active Substance: PANTOPRAZOLE SODIUM
     Indication: PRODUCT USED FOR UNKNOWN INDICATION
     Dosage: 10 MILLIGRAM, DAILY
     Route: 065
  16. BISOPROLOL [Suspect]
     Active Substance: BISOPROLOL
     Indication: PRODUCT USED FOR UNKNOWN INDICATION
     Dosage: 1.25 MG, QD IN THE MORNING
     Route: 065
  17. ALLOPURINOL. [Suspect]
     Active Substance: ALLOPURINOL
     Indication: PRODUCT USED FOR UNKNOWN INDICATION
     Dosage: 300 MG, QD
     Route: 065
  18. CLOPIDOGREL [Suspect]
     Active Substance: CLOPIDOGREL BISULFATE
     Indication: PRODUCT USED FOR UNKNOWN INDICATION
     Dosage: UNK UNK, QD ()
     Route: 065
  19. ALLOPURINOL. [Suspect]
     Active Substance: ALLOPURINOL
     Dosage: 100 MG, QD IN THE MORNING
     Route: 065
  20. AMOXICILLIN. [Suspect]
     Active Substance: AMOXICILLIN
     Indication: PRODUCT USED FOR UNKNOWN INDICATION
     Dosage: 1 G, BID
     Route: 065

REACTIONS (46)
  - Type 2 diabetes mellitus [Unknown]
  - Duodenitis [Unknown]
  - Exercise tolerance decreased [Unknown]
  - Cardiac failure [Fatal]
  - Infective exacerbation of chronic obstructive airways disease [Unknown]
  - COVID-19 pneumonia [Fatal]
  - Pulmonary vascular disorder [Unknown]
  - Oedema peripheral [Recovered/Resolved]
  - Blood glucose increased [Unknown]
  - Cardiac aneurysm [Unknown]
  - Ventricular arrhythmia [Unknown]
  - Normocytic anaemia [Unknown]
  - Gastritis [Unknown]
  - Systolic dysfunction [Unknown]
  - Chronic kidney disease [Fatal]
  - Chest discomfort [Unknown]
  - Dyspnoea [Unknown]
  - Hiatus hernia [Unknown]
  - Respiratory tract infection [Unknown]
  - Angina pectoris [Recovered/Resolved]
  - Helicobacter test positive [Unknown]
  - Respiratory disorder [Unknown]
  - Ventricular tachycardia [Unknown]
  - Coronary artery stenosis [Unknown]
  - Productive cough [Unknown]
  - Nicotine dependence [Fatal]
  - Wrong technique in product usage process [Unknown]
  - Mitral valve incompetence [Unknown]
  - Coronary artery disease [Unknown]
  - Atrial fibrillation [Fatal]
  - Gastritis erosive [Unknown]
  - Skin ulcer [Recovered/Resolved]
  - Peripheral venous disease [Fatal]
  - Pulmonary hypertension [Unknown]
  - Asthenia [Unknown]
  - Inferior vena cava dilatation [Fatal]
  - Cardiac disorder [Unknown]
  - Eye injury [Unknown]
  - Diarrhoea [Unknown]
  - Blood pressure systolic decreased [Unknown]
  - Cataract [Unknown]
  - Degenerative mitral valve disease [Unknown]
  - Ventricular hypokinesia [Unknown]
  - Heart rate irregular [Unknown]
  - Ventricular enlargement [Unknown]
  - Occult blood positive [Unknown]

NARRATIVE: CASE EVENT DATE: 201806
